FAERS Safety Report 5749554-3 (Version None)
Quarter: 2008Q2

REPORT INFORMATION
  Report Type: 
  Country: None (occurrence: None)
  Receive Date: 20080522
  Receipt Date: 20080522
  Transmission Date: 20081010
  Serious: Yes (Other)
  Sender: FDA-Public Use
  Company Number: None

PATIENT
  Sex: Female
  Weight: 106.1417 kg

DRUGS (1)
  1. TERCONAZOLE [Suspect]
     Indication: FUNGAL INFECTION
     Dosage: 1 AT BEDTIME
     Dates: start: 20080507, end: 20080508

REACTIONS (4)
  - DRUG HYPERSENSITIVITY [None]
  - PAIN [None]
  - PRURITUS [None]
  - RASH GENERALISED [None]
